FAERS Safety Report 9783282 (Version 1)
Quarter: 2013Q4

REPORT INFORMATION
  Report Type: Spontaneous
  Country: US (occurrence: US)
  Receive Date: 20131226
  Receipt Date: 20131226
  Transmission Date: 20140711
  Serious: No
  Sender: FDA-Public Use
  Company Number: US-009507513-1312USA009834

PATIENT
  Age: 28 Year
  Sex: Female
  Weight: 132.43 kg

DRUGS (2)
  1. IMPLANON [Suspect]
     Indication: CONTRACEPTION
     Dosage: UNK
     Route: 059
     Dates: start: 2010
  2. NEXPLANON [Suspect]
     Dosage: UNK
     Route: 059
     Dates: start: 201307

REACTIONS (1)
  - Overdose [Unknown]
